FAERS Safety Report 21070611 (Version 1)
Quarter: 2022Q3

REPORT INFORMATION
  Report Type: Spontaneous
  Country: IT (occurrence: IT)
  Receive Date: 20220712
  Receipt Date: 20220712
  Transmission Date: 20221027
  Serious: Yes (Life-Threatening, Hospitalization)
  Sender: FDA-Public Use
  Company Number: IT-MYLANLABS-2022M1077673

PATIENT
  Age: 23 Year
  Sex: Male

DRUGS (9)
  1. VORICONAZOLE [Suspect]
     Active Substance: VORICONAZOLE
     Indication: Fungal infection
     Dosage: 6 MILLIGRAM/KILOGRAM (AS A LOADING DOSE)
     Route: 065
  2. VORICONAZOLE [Suspect]
     Active Substance: VORICONAZOLE
     Dosage: 4 MILLIGRAM/KILOGRAM (AS A MAINTENANCE DOSE)
     Route: 065
  3. VORICONAZOLE [Suspect]
     Active Substance: VORICONAZOLE
     Dosage: 6 MILLIGRAM/KILOGRAM (AS A MAINTENANCE DOSE)
     Route: 065
  4. POSACONAZOLE [Suspect]
     Active Substance: POSACONAZOLE
     Indication: Antifungal prophylaxis
     Dosage: 200 MILLIGRAM (THREE TIMES A DAY)
     Route: 065
  5. AMPHOTERICIN B [Suspect]
     Active Substance: AMPHOTERICIN B
     Indication: Fungal infection
     Dosage: 5 MILLIGRAM/KILOGRAM, QD
     Route: 065
  6. DAUNORUBICIN [Concomitant]
     Active Substance: DAUNORUBICIN
     Indication: Acute myeloid leukaemia
     Dosage: 60 MILLIGRAM/SQ. METER (ON DAYS 1, 3 AND 5)
     Route: 042
  7. CYTARABINE [Concomitant]
     Active Substance: CYTARABINE
     Indication: Acute myeloid leukaemia
     Dosage: 100 MILLIGRAM/SQ. METER
     Route: 042
  8. FOSFOMYCIN [Concomitant]
     Active Substance: FOSFOMYCIN
     Indication: Pneumonia klebsiella
     Dosage: 16 GRAM, QD (DIVIDED INTO FOUR ADMINISTRATIONS)
     Route: 065
  9. AVIBACTAM SODIUM\CEFTAZIDIME [Concomitant]
     Active Substance: AVIBACTAM SODIUM\CEFTAZIDIME
     Indication: Pneumonia klebsiella
     Dosage: UNK, TID, UNK (THREE TIMES A DAY)
     Route: 065

REACTIONS (2)
  - Drug ineffective [Unknown]
  - Off label use [Unknown]
